FAERS Safety Report 25657442 (Version 4)
Quarter: 2025Q4

REPORT INFORMATION
  Report Type: Spontaneous
  Country: US (occurrence: US)
  Receive Date: 20250808
  Receipt Date: 20251120
  Transmission Date: 20260118
  Serious: No
  Sender: TOLMAR
  Company Number: US-Tolmar-TLM-2025-04800

PATIENT

DRUGS (2)
  1. ELIGARD [Suspect]
     Active Substance: LEUPROLIDE ACETATE
     Indication: Prostate cancer
     Dosage: BOX SERIAL#: 5996857652516?GTIN: 00362935461500?EXP DATE: 30-SEP-2026; OCT-2025; SEP-2026??DOSE NOT
     Route: 065
  2. DEVICE [Suspect]
     Active Substance: DEVICE
     Indication: Prostate cancer
     Dosage: BOX SERIAL#: 5996857652516?GTIN: 00362935461500?EXP DATE: 30-SEP-2026; OCT-2025; SEP-2026

REACTIONS (4)
  - Intercepted product preparation error [Unknown]
  - Wrong technique in product usage process [Unknown]
  - Device leakage [Unknown]
  - Product quality issue [Unknown]
